FAERS Safety Report 10157418 (Version 3)
Quarter: 2014Q2

REPORT INFORMATION
  Report Type: Spontaneous
  Country: US (occurrence: US)
  Receive Date: 20140507
  Receipt Date: 20140613
  Transmission Date: 20141212
  Serious: Yes (Hospitalization, Other)
  Sender: FDA-Public Use
  Company Number: US-PFIZER INC-2014122261

PATIENT
  Age: 71 Year
  Sex: Female
  Weight: 92.06 kg

DRUGS (2)
  1. REVATIO [Suspect]
     Indication: PULMONARY HYPERTENSION
     Dosage: UNK
  2. REVATIO [Suspect]
     Dosage: 20 MG, 3X/DAY
     Dates: start: 200706

REACTIONS (2)
  - Sinus disorder [Unknown]
  - Pneumonia [Unknown]
